FAERS Safety Report 6211061-1 (Version None)
Quarter: 2009Q2

REPORT INFORMATION
  Report Type: 
  Country: None (occurrence: None)
  Receive Date: 20090528
  Receipt Date: 20090520
  Transmission Date: 20091009
  Serious: Yes (Other)
  Sender: FDA-Public Use
  Company Number: SPV1-2009-01036

PATIENT
  Age: 15 Year
  Sex: Male
  Weight: 76.6 kg

DRUGS (1)
  1. VYVANSE [Suspect]
     Indication: ATTENTION DEFICIT/HYPERACTIVITY DISORDER
     Dosage: 30 MG, 1X/DAY:QD, ORAL
     Route: 048
     Dates: start: 20090520

REACTIONS (4)
  - ABNORMAL BEHAVIOUR [None]
  - EYE ROLLING [None]
  - LOSS OF CONSCIOUSNESS [None]
  - OFF LABEL USE [None]
